FAERS Safety Report 5483353-5 (Version None)
Quarter: 2007Q4

REPORT INFORMATION
  Report Type: 
  Country: None (occurrence: None)
  Receive Date: 20071009
  Receipt Date: 20071009
  Transmission Date: 20080405
  Serious: Yes (Other)
  Sender: FDA-Public Use
  Company Number: None

PATIENT
  Age: 47 Year
  Sex: Male
  Weight: 74.8435 kg

DRUGS (1)
  1. REMICADE [Suspect]
     Indication: RHEUMATOID ARTHRITIS
     Dosage: 300MG Q 8 WKS IV } 3 YRS
     Route: 042

REACTIONS (4)
  - ERYTHEMA [None]
  - LYMPHADENOPATHY [None]
  - LYMPHANGITIS [None]
  - THERMAL BURN [None]
